FAERS Safety Report 24262381 (Version 2)
Quarter: 2024Q3

REPORT INFORMATION
  Report Type: Spontaneous
  Country: US (occurrence: US)
  Receive Date: 20240829
  Receipt Date: 20240904
  Transmission Date: 20241017
  Serious: No
  Sender: AMGEN
  Company Number: US-AMGEN-USASP2024170184

PATIENT
  Sex: Female

DRUGS (2)
  1. MVASI [Suspect]
     Active Substance: BEVACIZUMAB-AWWB
     Indication: Brain neoplasm
     Dosage: 850 MILLIGRAM (2X400 MILLIGRAM, 1 X 100 MG VIALS)
     Route: 065
  2. MVASI [Suspect]
     Active Substance: BEVACIZUMAB-AWWB
     Dosage: 850 MILLIGRAM (2X400 MILLIGRAM, 1 X 100 MG VIALS)
     Route: 065

REACTIONS (1)
  - Unevaluable event [Unknown]
